FAERS Safety Report 23631358 (Version 2)
Quarter: 2024Q2

REPORT INFORMATION
  Report Type: Spontaneous
  Country: IT (occurrence: IT)
  Receive Date: 20240314
  Receipt Date: 20240410
  Transmission Date: 20240716
  Serious: Yes (Other)
  Sender: FDA-Public Use
  Company Number: IT-ROCHE-3275721

PATIENT
  Age: 62 Year
  Sex: Female
  Weight: 53 kg

DRUGS (40)
  1. ARIMIDEX [Suspect]
     Active Substance: ANASTROZOLE
     Indication: Breast cancer
     Dosage: 1 MG, QD
     Route: 048
     Dates: start: 20190628, end: 20210923
  2. AROMASIN [Suspect]
     Active Substance: EXEMESTANE
     Indication: Product used for unknown indication
     Dosage: 270 MG, TID INJECTION, POWDER, LYOPHILIZED, FOR SOLUTION
     Route: 042
     Dates: start: 20200508
  3. EXEMESTANE [Suspect]
     Active Substance: EXEMESTANE
     Indication: Breast cancer
     Dosage: 25 MG, QD
     Route: 048
     Dates: start: 20210924
  4. EXEMESTANE [Suspect]
     Active Substance: EXEMESTANE
     Indication: Product used for unknown indication
     Dosage: 25 MG, QID
     Route: 048
     Dates: start: 20210924
  5. PERJETA [Suspect]
     Active Substance: PERTUZUMAB
     Dosage: 420 MG, ONCE EVERY 3 WK
     Route: 042
     Dates: start: 20190125
  6. PERJETA [Suspect]
     Active Substance: PERTUZUMAB
     Indication: HER2 positive breast cancer
     Dosage: 840 MG, ONCE EVERY 3 WK
     Route: 042
     Dates: start: 20190104, end: 20190104
  7. PERTUZUMAB [Suspect]
     Active Substance: PERTUZUMAB
     Dosage: 420 MG, Q3W
     Route: 042
     Dates: start: 20190125
  8. PERTUZUMAB [Suspect]
     Active Substance: PERTUZUMAB
     Indication: Breast cancer
     Dosage: 840 MG, Q3W
     Route: 042
     Dates: start: 20190104, end: 20190104
  9. TAXOL [Suspect]
     Active Substance: PACLITAXEL
     Indication: Breast cancer
     Dosage: 120 MG, QW
     Route: 042
     Dates: start: 20190104, end: 20190621
  10. TRASTUZUMAB [Suspect]
     Active Substance: TRASTUZUMAB
     Dosage: 416 MG/KG, TIW
     Route: 042
     Dates: start: 20190104, end: 20190104
  11. TRASTUZUMAB [Suspect]
     Active Substance: TRASTUZUMAB
     Indication: Breast cancer
     Dosage: 6 MG/KG, ONCE EVERY 3 WK
     Route: 042
     Dates: start: 20190125, end: 20220826
  12. FAM-TRASTUZUMAB DERUXTECAN-NXKI [Suspect]
     Active Substance: FAM-TRASTUZUMAB DERUXTECAN-NXKI
     Indication: HER2 positive breast cancer
     Dosage: 270.000MG TIW
     Route: 042
     Dates: start: 20221006
  13. ANASTROZOLE [Concomitant]
     Active Substance: ANASTROZOLE
     Indication: Hypertension
     Dosage: 1.000MG
     Route: 065
     Dates: start: 20211125
  14. CHLORPHENIRAMINE MALEATE [Concomitant]
     Active Substance: CHLORPHENIRAMINE MALEATE
     Indication: Product used for unknown indication
     Dosage: 10 MG, ONCE EVERY 1 WK
     Route: 065
     Dates: start: 20190104, end: 20190621
  15. CHLORPHENIRAMINE MALEATE [Concomitant]
     Active Substance: CHLORPHENIRAMINE MALEATE
     Dosage: 10 MG, ONCE EVERY 3 WK
     Route: 065
     Dates: start: 20190719
  16. CHLORPHENIRAMINE MALEATE [Concomitant]
     Active Substance: CHLORPHENIRAMINE MALEATE
     Dosage: 10.000MG TIW
     Route: 065
     Dates: start: 20190719
  17. CHLORPHENIRAMINE MALEATE [Concomitant]
     Active Substance: CHLORPHENIRAMINE MALEATE
     Dosage: 10.000MG TIW
     Route: 065
     Dates: start: 20190719
  18. CHLORPHENIRAMINE MALEATE [Concomitant]
     Active Substance: CHLORPHENIRAMINE MALEATE
     Dosage: 10.000MG TIW
     Route: 065
     Dates: start: 20190719
  19. CHLORPHENIRAMINE MALEATE [Concomitant]
     Active Substance: CHLORPHENIRAMINE MALEATE
     Dosage: 10.000MG TIW
     Route: 065
     Dates: start: 20190719
  20. CHLORPHENIRAMINE MALEATE [Concomitant]
     Active Substance: CHLORPHENIRAMINE MALEATE
     Dosage: 10.000MG TIW
     Route: 065
     Dates: start: 20190719
  21. CHLORPHENIRAMINE MALEATE [Concomitant]
     Active Substance: CHLORPHENIRAMINE MALEATE
     Dosage: 10.000MG TIW
     Route: 065
     Dates: start: 20190719
  22. CHLORPHENIRAMINE MALEATE [Concomitant]
     Active Substance: CHLORPHENIRAMINE MALEATE
     Dosage: 10.000MG TIW
     Route: 065
     Dates: start: 20190719
  23. CHLORPHENIRAMINE MALEATE [Concomitant]
     Active Substance: CHLORPHENIRAMINE MALEATE
     Dosage: 10.000MG TIW
     Route: 065
     Dates: start: 20190719
  24. CHLORPHENIRAMINE MALEATE [Concomitant]
     Active Substance: CHLORPHENIRAMINE MALEATE
     Dosage: 10.000MG
     Route: 065
     Dates: start: 20190104, end: 20190621
  25. CHLORPHENIRAMINE MALEATE [Concomitant]
     Active Substance: CHLORPHENIRAMINE MALEATE
     Dosage: 10.000MG
     Route: 065
     Dates: start: 20190104, end: 20190621
  26. CHLORPHENIRAMINE MALEATE [Concomitant]
     Active Substance: CHLORPHENIRAMINE MALEATE
     Dosage: 10.000MG
     Route: 065
     Dates: start: 20190104, end: 20190621
  27. CHLORPHENIRAMINE MALEATE [Concomitant]
     Active Substance: CHLORPHENIRAMINE MALEATE
     Dosage: 10.000MG
     Route: 065
     Dates: start: 20190104, end: 20190621
  28. CHLORPHENIRAMINE MALEATE [Concomitant]
     Active Substance: CHLORPHENIRAMINE MALEATE
     Dosage: 10.000MG
     Route: 065
     Dates: start: 20190104, end: 20190621
  29. CHLORPHENIRAMINE MALEATE [Concomitant]
     Active Substance: CHLORPHENIRAMINE MALEATE
     Dosage: 10.000MG
     Route: 065
     Dates: start: 20190104, end: 20190621
  30. CHLORPHENIRAMINE MALEATE [Concomitant]
     Active Substance: CHLORPHENIRAMINE MALEATE
     Dosage: 10.000MG
     Route: 065
     Dates: start: 20190104, end: 20190621
  31. CHLORPHENIRAMINE MALEATE [Concomitant]
     Active Substance: CHLORPHENIRAMINE MALEATE
     Dosage: 10.000MG
     Route: 065
     Dates: start: 20190104, end: 20190621
  32. GRANISETRONE [Concomitant]
     Indication: Product used for unknown indication
     Dosage: 1 MG, QW
     Route: 065
     Dates: start: 20190104, end: 20190621
  33. GRANISETRONE [Concomitant]
     Dosage: 1.000MG
     Route: 065
     Dates: start: 20190104, end: 20190621
  34. GRANISETRONE [Concomitant]
     Dosage: 1.000MG
     Route: 065
     Dates: start: 20190104, end: 20190621
  35. METHYLPREDNISOLONE [Concomitant]
     Active Substance: METHYLPREDNISOLONE
     Indication: Product used for unknown indication
     Dosage: 125 MG, ONCE EVERY 3 WK
     Route: 065
     Dates: start: 20200508
  36. METOPROLOL [Concomitant]
     Active Substance: METOPROLOL
     Indication: Hypertension
     Dosage: 25 MG, (0.5 DAY)
     Route: 065
     Dates: start: 20200829
  37. METOPROLOL [Concomitant]
     Active Substance: METOPROLOL
     Dosage: 25 MG
     Route: 065
     Dates: start: 20200829
  38. PANTOPRAZOLE SODIUM [Concomitant]
     Active Substance: PANTOPRAZOLE SODIUM
     Indication: Product used for unknown indication
     Dosage: 20 MG, QD
     Route: 065
  39. LAMIVUDINE [Concomitant]
     Active Substance: LAMIVUDINE
     Indication: Product used for unknown indication
     Dosage: 100 MG, QD
     Route: 065
  40. ZOLEDRONIC ACID [Concomitant]
     Active Substance: ZOLEDRONIC ACID
     Indication: Metastases to bone
     Dosage: 4 MG, Q3MO
     Route: 065

REACTIONS (4)
  - Toxicity to various agents [Recovered/Resolved]
  - Eastern Cooperative Oncology Group performance status worsened [Not Recovered/Not Resolved]
  - Asthenia [Recovered/Resolved]
  - Nausea [Recovered/Resolved]

NARRATIVE: CASE EVENT DATE: 20221027
